FAERS Safety Report 19272358 (Version 1)
Quarter: 2021Q2

REPORT INFORMATION
  Report Type: Spontaneous
  Country: NL (occurrence: NL)
  Receive Date: 20210519
  Receipt Date: 20210519
  Transmission Date: 20210717
  Serious: Yes (Hospitalization)
  Sender: FDA-Public Use
  Company Number: NL-TEVA-2021-NL-1911936

PATIENT
  Sex: Female
  Weight: 80 kg

DRUGS (3)
  1. BACLOFEN / BRAND NAME NOT SPECIFIED [Interacting]
     Active Substance: BACLOFEN
     Indication: MUSCLE SPASMS
  2. BACLOFEN / BRAND NAME NOT SPECIFIED [Suspect]
     Active Substance: BACLOFEN
     Indication: MUSCLE SPASMS
     Dosage: THERAPY START AND END DATE: ASKU
     Route: 065
  3. LINACLOTIDE CAPSULE 290UG / CONSTELLA CAPSULE 290MCG [Interacting]
     Active Substance: LINACLOTIDE
     Indication: CONSTIPATION
     Dosage: 290 MICROGRAM DAILY;
     Route: 065
     Dates: start: 2021, end: 20210426

REACTIONS (5)
  - Headache [Recovered/Resolved]
  - Drug interaction [Unknown]
  - Muscle spasms [Recovered/Resolved]
  - Hypertonia [Recovered/Resolved]
  - Abdominal discomfort [Recovered/Resolved]
